FAERS Safety Report 17004547 (Version 5)
Quarter: 2020Q1

REPORT INFORMATION
  Report Type: Spontaneous
  Country: US (occurrence: US)
  Receive Date: 20191107
  Receipt Date: 20200123
  Transmission Date: 20200409
  Serious: No
  Sender: FDA-Public Use
  Company Number: US-PFIZER INC-2019477014

PATIENT
  Age: 65 Year
  Sex: Female
  Weight: 95 kg

DRUGS (10)
  1. IBRANCE [Suspect]
     Active Substance: PALBOCICLIB
     Indication: BREAST CANCER METASTATIC
     Dosage: 125 MG, CYCLIC (125 MG ONCE DAILY FOR 21 DAYS ON THE 7 DAYS OFF)
     Route: 048
     Dates: start: 2018, end: 201910
  2. CALCIUM + VITAMIN D [CALCIUM;COLECALCIFEROL] [Concomitant]
     Dosage: 500 MG, UNK
  3. DRISDOL [Concomitant]
     Active Substance: ERGOCALCIFEROL
     Dosage: UNK (50000)
  4. VALTREX [Concomitant]
     Active Substance: VALACYCLOVIR HYDROCHLORIDE
     Dosage: 1 G, AS NEEDED
  5. XGEVA [Concomitant]
     Active Substance: DENOSUMAB
     Dosage: UNK, MONTHLY (ONCE A MONTH/SHOT)
     Dates: start: 2018
  6. AROMASIN [Concomitant]
     Active Substance: EXEMESTANE
     Dosage: 25 MG, DAILY
     Dates: start: 2018
  7. LIPITOR [Concomitant]
     Active Substance: ATORVASTATIN CALCIUM
     Dosage: 20 MG, DAILY
  8. EFFEXOR [Concomitant]
     Active Substance: VENLAFAXINE HYDROCHLORIDE
     Dosage: 100 MG, DAILY
  9. LEVOTHYROXINE SODIUM. [Concomitant]
     Active Substance: LEVOTHYROXINE SODIUM
     Dosage: 88 UG, ALTERNATE DAY (SYNTHROID 100 MCG 1 DAY + ALTERNATE WITH LEVOTHYROXINE 88 MCG 1 A DAY)
  10. SYNTHROID [Concomitant]
     Active Substance: LEVOTHYROXINE SODIUM
     Dosage: 100 UG, ALTERNATE DAY (SYNTHROID 100 MCG 1 DAY + ALTERNATE WITH LEVOTHYROXINE 88 MCG 1 A DAY)

REACTIONS (1)
  - Neoplasm progression [Unknown]

NARRATIVE: CASE EVENT DATE: 2019
